FAERS Safety Report 9611909 (Version 2)
Quarter: 2013Q4

REPORT INFORMATION
  Report Type: Spontaneous
  Country: US (occurrence: US)
  Receive Date: 20131010
  Receipt Date: 20131125
  Transmission Date: 20140711
  Serious: Yes (Hospitalization)
  Sender: FDA-Public Use
  Company Number: US-ASTELLAS-2013US010371

PATIENT
  Age: 64 Year
  Sex: Male
  Weight: 41 kg

DRUGS (12)
  1. XTANDI [Suspect]
     Indication: PROSTATE CANCER
     Dosage: 160 MG, UID/QD
     Route: 048
  2. LISINOPRIL [Concomitant]
     Indication: BLOOD PRESSURE
     Dosage: 40 MG, UID/QD
     Route: 065
     Dates: start: 201309
  3. CYMBALTA [Concomitant]
     Indication: DEPRESSION
     Dosage: 20 MG, UID/QD
     Route: 065
  4. CELEBREX [Concomitant]
     Indication: INFLAMMATION
     Dosage: 200 MG, UID/QD
     Route: 065
  5. LEVETIRACETAM [Concomitant]
     Indication: CONVULSION
     Dosage: 500 MG, BID
     Route: 065
  6. PREDNISONE [Concomitant]
     Indication: APPETITE DISORDER
     Dosage: 10 MG, BID
     Route: 065
  7. NEXIUM                             /01479302/ [Concomitant]
     Indication: GASTROOESOPHAGEAL REFLUX DISEASE
     Dosage: 40 MG, UID/QD
     Route: 065
  8. OXYCONTIN [Concomitant]
     Indication: PAIN
     Dosage: 40 MG, TID
     Route: 065
  9. OXYCODONE [Concomitant]
     Indication: PAIN
     Dosage: 15 MG, BID
     Route: 065
  10. SOMA [Concomitant]
     Indication: MUSCLE RELAXANT THERAPY
     Dosage: 350 MG, TID
     Route: 065
  11. MULTIVITAMIN                       /00097801/ [Concomitant]
     Indication: PRODUCT USED FOR UNKNOWN INDICATION
     Dosage: 1 DF, UID/QD
     Route: 065
  12. IRON [Concomitant]
     Indication: ANAEMIA
     Dosage: 45 MG, TID
     Route: 065

REACTIONS (2)
  - Respiratory failure [Recovered/Resolved]
  - Pneumonia [Recovered/Resolved]
